FAERS Safety Report 6443485-1 (Version None)
Quarter: 2009Q4

REPORT INFORMATION
  Report Type: 
  Country: None (occurrence: None)
  Receive Date: 20091117
  Receipt Date: 20091113
  Transmission Date: 20100525
  Serious: Yes (Life-Threatening, Hospitalization, Other)
  Sender: FDA-Public Use
  Company Number: DE-ABBOTT-09P-062-0579270-04

PATIENT
  Sex: Male

DRUGS (8)
  1. SIBUTRAMINE [Suspect]
     Indication: OBESITY
     Route: 048
     Dates: start: 20040303, end: 20060125
  2. SIBUTRAMINE [Suspect]
     Dates: start: 20060112
  3. ASPIRIN [Concomitant]
     Indication: CORONARY ARTERY DISEASE
  4. ASPIRIN [Concomitant]
     Indication: PERIPHERAL VASCULAR DISORDER
  5. TORSEMIDE [Concomitant]
     Indication: CARDIAC FAILURE CONGESTIVE
  6. RAMIPRIL [Concomitant]
     Indication: CARDIAC FAILURE CONGESTIVE
  7. NEBILET [Concomitant]
     Indication: CORONARY ARTERY DISEASE
  8. SIMVASTATIN [Concomitant]
     Indication: DYSLIPIDAEMIA

REACTIONS (1)
  - VENTRICULAR FIBRILLATION [None]
